FAERS Safety Report 6432490-7 (Version None)
Quarter: 2009Q4

REPORT INFORMATION
  Report Type: 
  Country: None (occurrence: None)
  Receive Date: 20091109
  Receipt Date: 20091030
  Transmission Date: 20100525
  Serious: Yes (Other)
  Sender: FDA-Public Use
  Company Number: US-ABBOTT-09P-163-0606378-00

PATIENT
  Age: 33 Year
  Sex: Female

DRUGS (1)
  1. LUPRON DEPOT [Suspect]
     Indication: POLYCYSTIC OVARIES

REACTIONS (3)
  - BONE PAIN [None]
  - MEMORY IMPAIRMENT [None]
  - SYSTEMIC LUPUS ERYTHEMATOSUS [None]
